FAERS Safety Report 19207273 (Version 1)
Quarter: 2021Q2

REPORT INFORMATION
  Report Type: Spontaneous
  Country: US (occurrence: US)
  Receive Date: 20210503
  Receipt Date: 20210503
  Transmission Date: 20210717
  Serious: No
  Sender: FDA-Public Use
  Company Number: US-PFIZER INC-2020207735

PATIENT
  Age: 48 Year
  Sex: Female
  Weight: 59.87 kg

DRUGS (3)
  1. TOPIRAMATE. [Concomitant]
     Active Substance: TOPIRAMATE
     Indication: MIGRAINE
     Dosage: 50 MG, 2X/DAY (50MG IN THE MORNING AND AT NIGHT)
  2. PREMARIN [Suspect]
     Active Substance: ESTROGENS, CONJUGATED
     Indication: HORMONE REPLACEMENT THERAPY
     Dosage: 0.9 MG, 1X/DAY
     Route: 048
     Dates: start: 201912
  3. AMITRIPTYLINE [Concomitant]
     Active Substance: AMITRIPTYLINE
     Indication: MIGRAINE
     Dosage: 20 MG, 1X/DAY (TWO 10MG TABLETS BY MOUTH EVERY NIGHT)
     Route: 048

REACTIONS (2)
  - Mood swings [Unknown]
  - Eczema [Unknown]
